FAERS Safety Report 5572958-9 (Version None)
Quarter: 2007Q4

REPORT INFORMATION
  Report Type: 
  Country: None (occurrence: None)
  Receive Date: 20071219
  Receipt Date: 20071219
  Transmission Date: 20080405
  Serious: No
  Sender: FDA-Public Use
  Company Number: None

PATIENT
  Age: 24 Year
  Sex: Male
  Weight: 65.318 kg

DRUGS (3)
  1. RISPERIDONE [Suspect]
     Dosage: 5MG BID  PO
     Route: 048
  2. ABILIFY [Concomitant]
  3. OMEPRAZOLE [Concomitant]

REACTIONS (2)
  - HAEMATEMESIS [None]
  - ILL-DEFINED DISORDER [None]
